FAERS Safety Report 9918847 (Version 6)
Quarter: 2014Q4

REPORT INFORMATION
  Report Type: Spontaneous
  Country: US (occurrence: US)
  Receive Date: 20140224
  Receipt Date: 20141023
  Transmission Date: 20150529
  Serious: Yes (Hospitalization)
  Sender: FDA-Public Use
  Company Number: US-BAYER-2014-026360

PATIENT
  Age: 27 Year
  Sex: Female
  Weight: 61.22 kg

DRUGS (6)
  1. MIRENA [Suspect]
     Active Substance: LEVONORGESTREL
     Indication: CONTRACEPTION
     Dosage: 20 MCG/24HR, UNK
     Route: 015
     Dates: start: 20060529, end: 20110210
  2. AVITENE [Concomitant]
  3. LABETALOL [Concomitant]
     Active Substance: LABETALOL\LABETALOL HYDROCHLORIDE
  4. THROMBIN [Concomitant]
     Active Substance: THROMBIN
  5. PEPCID [Concomitant]
     Active Substance: FAMOTIDINE
  6. SURGICEL [Concomitant]
     Active Substance: CELLULOSE, OXIDIZED

REACTIONS (9)
  - Pain [None]
  - Uterine perforation [None]
  - Placenta accreta [None]
  - Pregnancy with contraceptive device [None]
  - Bladder perforation [None]
  - Injury [None]
  - Postpartum haemorrhage [None]
  - Emotional distress [None]
  - Drug ineffective [None]

NARRATIVE: CASE EVENT DATE: 201102
